FAERS Safety Report 5934293-6 (Version None)
Quarter: 2008Q4

REPORT INFORMATION
  Report Type: 
  Country: None (occurrence: None)
  Receive Date: 20081029
  Receipt Date: 20081017
  Transmission Date: 20090506
  Serious: Yes (Other)
  Sender: FDA-Public Use
  Company Number: PHHY2008DE25289

PATIENT
  Sex: Male

DRUGS (1)
  1. FLUVASTATIN [Suspect]
     Dosage: UNK
     Route: 048
     Dates: start: 20070101

REACTIONS (3)
  - BLOOD CREATINE PHOSPHOKINASE INCREASED [None]
  - BLOOD CREATINE PHOSPHOKINASE MB INCREASED [None]
  - MYOCARDIAL INFARCTION [None]
